FAERS Safety Report 5112589-8 (Version None)
Quarter: 2006Q3

REPORT INFORMATION
  Report Type: 
  Country: None (occurrence: None)
  Receive Date: 20060802
  Receipt Date: 20060605
  Transmission Date: 20061208
  Serious: Yes (Other)
  Sender: FDA-Public Use
  Company Number: 200614923US

PATIENT
  Age: 35 Year
  Sex: Male

DRUGS (1)
  1. KETEK [Suspect]
     Indication: SINUSITIS
     Dosage: 400 MG PO
     Route: 048
     Dates: start: 20060601, end: 20060602

REACTIONS (2)
  - ERYTHEMA [None]
  - URTICARIA GENERALISED [None]
